FAERS Safety Report 7908884-7 (Version None)
Quarter: 2011Q4

REPORT INFORMATION
  Report Type: 
  Country: None (occurrence: None)
  Receive Date: 20111111
  Receipt Date: 20111103
  Transmission Date: 20120403
  Serious: Yes (Hospitalization)
  Sender: FDA-Public Use
  Company Number: US-BRISTOL-MYERS SQUIBB COMPANY-16190266

PATIENT
  Age: 72 Year
  Sex: Female
  Weight: 102 kg

DRUGS (6)
  1. COUMADIN [Suspect]
     Indication: THROMBOPHLEBITIS SUPERFICIAL
  2. LOVENOX [Suspect]
     Indication: THROMBOPHLEBITIS SUPERFICIAL
  3. LEVOXYL [Concomitant]
  4. TAXOTERE [Suspect]
     Indication: ADENOCARCINOMA
     Dates: start: 20100101
  5. ELOXATIN [Suspect]
     Indication: ADENOCARCINOMA
     Dates: start: 20100101
  6. ATENOLOL [Concomitant]

REACTIONS (3)
  - ANAEMIA [None]
  - GASTROINTESTINAL HAEMORRHAGE [None]
  - THROMBOPHLEBITIS SUPERFICIAL [None]
